FAERS Safety Report 10186757 (Version 1)
Quarter: 2014Q2

REPORT INFORMATION
  Report Type: Spontaneous
  Country: GB (occurrence: GB)
  Receive Date: 20140521
  Receipt Date: 20140521
  Transmission Date: 20141212
  Serious: Yes (Hospitalization)
  Sender: FDA-Public Use
  Company Number: PHFR2014GB003448

PATIENT
  Age: 66 Year
  Sex: Female

DRUGS (5)
  1. ZOLEDRONIC ACID [Suspect]
     Indication: OSTEOPOROSIS
     Dosage: 5 MG, UNK
     Route: 042
     Dates: start: 20091121
  2. ZOLEDRONIC ACID [Suspect]
     Dosage: 5 MG, UNK
     Route: 042
  3. ZOLEDRONIC ACID [Suspect]
     Dosage: 5 MG, UNK
     Route: 042
  4. ZOLEDRONIC ACID [Suspect]
     Dosage: 5 MG, UNK
     Route: 042
  5. DENOSUMAB [Concomitant]
     Indication: OSTEOPOROSIS
     Dosage: 60 MG/ML, UNK
     Route: 058
     Dates: start: 20131101

REACTIONS (1)
  - Atypical femur fracture [Unknown]
